FAERS Safety Report 6009992-0 (Version None)
Quarter: 2008Q4

REPORT INFORMATION
  Report Type: 
  Country: None (occurrence: None)
  Receive Date: 20081216
  Receipt Date: 20081204
  Transmission Date: 20090506
  Serious: Yes (Other)
  Sender: FDA-Public Use
  Company Number: 2008AL012362

PATIENT
  Age: 73 Year
  Sex: Male

DRUGS (8)
  1. AMLODIPINE BESYLATE [Suspect]
     Indication: HYPERTENSION
     Dosage: 10 MG; QD; PO
     Route: 048
     Dates: start: 20081107, end: 20081108
  2. CO-DYDRAMOL [Concomitant]
  3. ALBUTEROL SULFATE [Concomitant]
  4. SALMETEROL [Concomitant]
  5. CLENIL [Concomitant]
  6. ZOLADEX [Concomitant]
  7. BENDROFLUMETHIAZIDE [Concomitant]
  8. CYPROTERONE [Concomitant]

REACTIONS (2)
  - MUSCULOSKELETAL STIFFNESS [None]
  - PRODUCT QUALITY ISSUE [None]
